FAERS Safety Report 20711919 (Version 1)
Quarter: 2022Q2

REPORT INFORMATION
  Report Type: Spontaneous
  Country: US (occurrence: US)
  Receive Date: 20220414
  Receipt Date: 20220414
  Transmission Date: 20220721
  Serious: No
  Sender: FDA-Public Use
  Company Number: US-PFIZER INC-202101564373

PATIENT
  Age: 65 Year
  Sex: Male

DRUGS (3)
  1. BOSULIF [Suspect]
     Active Substance: BOSUTINIB MONOHYDRATE
     Indication: Chronic myeloid leukaemia
     Dosage: 400 MG, 1X/DAY
     Route: 048
     Dates: start: 20211110
  2. LACTULOSE [Suspect]
     Active Substance: LACTULOSE
     Dosage: UNK
  3. TASIGNA [Concomitant]
     Active Substance: NILOTINIB
     Dosage: UNK

REACTIONS (1)
  - Diarrhoea [Unknown]
